FAERS Safety Report 23102621 (Version 2)
Quarter: 2023Q4

REPORT INFORMATION
  Report Type: Report from Study
  Country: US (occurrence: US)
  Receive Date: 20231025
  Receipt Date: 20231226
  Transmission Date: 20240110
  Serious: Yes (Hospitalization, Other)
  Sender: FDA-Public Use
  Company Number: US-002147023-NVSC2023US225588

PATIENT
  Sex: Female

DRUGS (2)
  1. ENTRESTO [Suspect]
     Active Substance: SACUBITRIL\VALSARTAN
     Indication: Cardiac failure
     Dosage: UNK
     Route: 048
     Dates: start: 2020
  2. ENTRESTO [Suspect]
     Active Substance: SACUBITRIL\VALSARTAN
     Dosage: 1 DOSAGE FORM, BID (97/103 MG)
     Route: 048

REACTIONS (21)
  - Transient ischaemic attack [Recovered/Resolved]
  - Loss of consciousness [Recovered/Resolved]
  - Thrombosis [Unknown]
  - Atrial fibrillation [Recovered/Resolved]
  - Device loosening [Unknown]
  - Hypertension [Recovered/Resolved]
  - Tooth fracture [Recovered/Resolved]
  - Sickle cell anaemia [Recovered/Resolved]
  - Cardiac valve disease [Unknown]
  - Iron deficiency anaemia [Not Recovered/Not Resolved]
  - Fatigue [Unknown]
  - Device malfunction [Recovered/Resolved]
  - Heart rate irregular [Unknown]
  - Hypertension [Unknown]
  - Depressed mood [Unknown]
  - Mood swings [Unknown]
  - Insomnia [Recovering/Resolving]
  - Dyspnoea [Recovered/Resolved]
  - Gait disturbance [Recovered/Resolved]
  - Nausea [Recovered/Resolved]
  - Pruritus [Recovered/Resolved]

NARRATIVE: CASE EVENT DATE: 20200101
